FAERS Safety Report 19820465 (Version 1)
Quarter: 2021Q3

REPORT INFORMATION
  Report Type: Spontaneous
  Country: US (occurrence: US)
  Receive Date: 20210911
  Receipt Date: 20210911
  Transmission Date: 20211014
  Serious: Yes (Other)
  Sender: FDA-Public Use
  Company Number: None

PATIENT
  Age: 44 Year
  Sex: Female
  Weight: 92.7 kg

DRUGS (6)
  1. VENOFER [Suspect]
     Active Substance: IRON SUCROSE
     Indication: IRON DEFICIENCY ANAEMIA
     Dosage: ?          OTHER FREQUENCY:ONCE WEEKLY;?
     Route: 042
     Dates: start: 20210618, end: 20210802
  2. IBUPROFEN. [Concomitant]
     Active Substance: IBUPROFEN
  3. IRON SUPPLEMENT [Concomitant]
     Active Substance: IRON
  4. METOPROLOL TARTRATE. [Concomitant]
     Active Substance: METOPROLOL TARTRATE
  5. HYDROCHLOROTHIAZIDE. [Concomitant]
     Active Substance: HYDROCHLOROTHIAZIDE
  6. VITAMIN C [Concomitant]
     Active Substance: ASCORBIC ACID

REACTIONS (4)
  - Gingival bleeding [None]
  - Heavy menstrual bleeding [None]
  - Ear canal abrasion [None]
  - Contusion [None]

NARRATIVE: CASE EVENT DATE: 20210802
